FAERS Safety Report 23058014 (Version 2)
Quarter: 2023Q4

REPORT INFORMATION
  Report Type: Spontaneous
  Country: US (occurrence: US)
  Receive Date: 20231012
  Receipt Date: 20231027
  Transmission Date: 20240110
  Serious: No
  Sender: FDA-Public Use
  Company Number: US-TAKEDA-2023TUS097388

PATIENT
  Sex: Male
  Weight: 37 kg

DRUGS (2)
  1. VYVANSE [Suspect]
     Active Substance: LISDEXAMFETAMINE DIMESYLATE
     Indication: Attention deficit hyperactivity disorder
     Dosage: 30 MILLIGRAM
     Route: 065
  2. VYVANSE [Suspect]
     Active Substance: LISDEXAMFETAMINE DIMESYLATE
     Dosage: 40 MILLIGRAM, QD
     Route: 065

REACTIONS (6)
  - Product physical issue [Unknown]
  - Drug ineffective [Unknown]
  - Mental disorder [Unknown]
  - Educational problem [Unknown]
  - Poor quality product administered [Unknown]
  - Product use issue [Unknown]
